FAERS Safety Report 6333105-9 (Version None)
Quarter: 2009Q3

REPORT INFORMATION
  Report Type: 
  Country: None (occurrence: None)
  Receive Date: 20090828
  Receipt Date: 20090820
  Transmission Date: 20100115
  Serious: Yes (Hospitalization)
  Sender: FDA-Public Use
  Company Number: US-AVENTIS-200917562US

PATIENT
  Sex: Male

DRUGS (2)
  1. LANTUS [Suspect]
     Dosage: DOSE: 25 AM AND 100 BEDTIME
     Route: 058
  2. NOVOLOG [Concomitant]
     Dosage: DOSE: UNK

REACTIONS (9)
  - ACCIDENTAL NEEDLE STICK [None]
  - BLOOD GLUCOSE INCREASED [None]
  - DEAFNESS [None]
  - FALL [None]
  - FEELING ABNORMAL [None]
  - HYPERHIDROSIS [None]
  - INJECTION SITE HAEMORRHAGE [None]
  - INJURY [None]
  - RENAL DISORDER [None]
